FAERS Safety Report 9690405 (Version 1)
Quarter: 2013Q4

REPORT INFORMATION
  Report Type: Spontaneous
  Country: DE (occurrence: None)
  Receive Date: 20131113
  Receipt Date: 20131113
  Transmission Date: 20140711
  Serious: Yes (Other)
  Sender: FDA-Public Use
  Company Number: SYM-2013-12144

PATIENT
  Age: 80 Year
  Sex: Female
  Weight: 83 kg

DRUGS (6)
  1. ZYCLARA [Suspect]
     Indication: ACTINIC KERATOSIS
     Dosage: 1 SACHET DAILY
     Dates: start: 20130812, end: 20130923
  2. TORASEMIDE (TORASEMIDE) [Concomitant]
  3. BISOPROLOL (BISOPROLOL) [Concomitant]
  4. NITRENDIPINE [Concomitant]
  5. VALSARTAN COMP [Concomitant]
  6. MOXONIDINE (MOXONIDINE) [Concomitant]

REACTIONS (3)
  - Cardiovascular disorder [None]
  - Fatigue [None]
  - Fatigue [None]
